FAERS Safety Report 24905626 (Version 1)
Quarter: 2025Q1

REPORT INFORMATION
  Report Type: Report from Study
  Country: US (occurrence: US)
  Receive Date: 20250130
  Receipt Date: 20250130
  Transmission Date: 20250409
  Serious: No
  Sender: HRA PHARMA
  Company Number: US-ORG100014127-2024000173

PATIENT
  Age: 52 Year
  Sex: Male

DRUGS (18)
  1. METOPIRONE [Suspect]
     Active Substance: METYRAPONE
     Indication: Adrenal gland cancer
     Dosage: 2 PILLS OF METOPIRONE INSTEAD OF 1 PIL
     Route: 048
     Dates: start: 20240614
  2. METOPIRONE [Suspect]
     Active Substance: METYRAPONE
     Indication: Adrenal gland cancer
     Dosage: 1 CAPSULE (250 MG) THREE TIMES DAILY, AFTER 3 TO 4 DAYS, INCREASE TO TWO CAPSULES THREE TIMES DAILY
     Route: 048
  3. LYSODREN [Concomitant]
     Active Substance: MITOTANE
     Indication: Adrenal gland cancer
     Dosage: START WITH 500 MG BY MOUTH THREE TIMES DAILY
     Route: 048
     Dates: start: 20240606
  4. LYSODREN [Concomitant]
     Active Substance: MITOTANE
     Indication: Adrenal gland cancer
     Dosage: AFTER 3-4 DAYS INCREASE TO 1000 MG THREE TIMES?DAILY
     Route: 048
  5. LYSODREN [Concomitant]
     Active Substance: MITOTANE
     Indication: Adrenal gland cancer
     Dosage: AFTER 4 DAYS INCREASE TO 3 TABLETS DAILY
     Route: 048
     Dates: end: 2024
  6. ALLOPURINOL TAB 300MG [Concomitant]
     Indication: Product used for unknown indication
  7. AMLODIPINE [Concomitant]
     Active Substance: AMLODIPINE BESYLATE
     Indication: Product used for unknown indication
  8. ATORVASTATIN [Concomitant]
     Active Substance: ATORVASTATIN
     Indication: Product used for unknown indication
  9. CARVEDILOL TAB 12.5MG [Concomitant]
     Indication: Product used for unknown indication
  10. CYANOCOBALAM INJ 1000MCG [Concomitant]
     Indication: Product used for unknown indication
  11. JARDIANCE [Concomitant]
     Active Substance: EMPAGLIFLOZIN
     Indication: Product used for unknown indication
  12. KLOR-CON M20 TAB 20MEQ ER; [Concomitant]
     Indication: Product used for unknown indication
  13. LISINOPRIL TAB 40MG [Concomitant]
     Indication: Product used for unknown indication
  14. METFORMIN TAB 500MG ER [Concomitant]
     Indication: Product used for unknown indication
  15. MULTIVITAMIN TAB ADULTS [Concomitant]
     Indication: Product used for unknown indication
  16. PANTOPRAZOLE TAB 40MG [Concomitant]
     Indication: Product used for unknown indication
  17. SPIRONOLACTONE [Concomitant]
     Active Substance: SPIRONOLACTONE
     Indication: Product used for unknown indication
  18. SUCRALFATE TAB 1GM [Concomitant]
     Indication: Product used for unknown indication

REACTIONS (1)
  - Off label use [Unknown]

NARRATIVE: CASE EVENT DATE: 20240614
